FAERS Safety Report 23337855 (Version 3)
Quarter: 2024Q1

REPORT INFORMATION
  Report Type: Spontaneous
  Country: FR (occurrence: FR)
  Receive Date: 20231226
  Receipt Date: 20240111
  Transmission Date: 20240409
  Serious: Yes (Other)
  Sender: FDA-Public Use
  Company Number: FR-GSKCCFEMEA-Case-01878031_AE-78584

PATIENT

DRUGS (8)
  1. LAMICTAL [Suspect]
     Active Substance: LAMOTRIGINE
     Indication: Product used for unknown indication
     Dosage: 100 MG
  2. LAMICTAL [Suspect]
     Active Substance: LAMOTRIGINE
     Dosage: 125 MG, QD MORNING
  3. LAMICTAL [Suspect]
     Active Substance: LAMOTRIGINE
     Dosage: 100 MG
  4. LAMICTAL [Suspect]
     Active Substance: LAMOTRIGINE
     Dosage: 75 MG
  5. CLOPIDOGREL [Suspect]
     Active Substance: CLOPIDOGREL BISULFATE
     Indication: Product used for unknown indication
     Dosage: 75 MG, QD
  6. REFRESH CLASSIC [Suspect]
     Active Substance: POLYVINYL ALCOHOL\POVIDONE
     Indication: Product used for unknown indication
     Dosage: UNK 1 DROP 3 TO 4 TIMES
  7. DICLOFENAC DIETHYLAMINE [Suspect]
     Active Substance: DICLOFENAC DIETHYLAMINE
     Indication: Product used for unknown indication
     Dosage: UNK
  8. CHOLECALCIFEROL [Suspect]
     Active Substance: CHOLECALCIFEROL
     Indication: Product used for unknown indication
     Dosage: UNK

REACTIONS (24)
  - Hallucination [Unknown]
  - Urinary retention [Unknown]
  - Confusional state [Unknown]
  - Amnesia [Recovered/Resolved]
  - Asthenia [Unknown]
  - Fatigue [Unknown]
  - Stomatitis [Unknown]
  - Oral discomfort [Unknown]
  - Diplopia [Unknown]
  - Rash [Unknown]
  - Vision blurred [Unknown]
  - Abnormal faeces [Unknown]
  - Myalgia [Unknown]
  - Musculoskeletal chest pain [Unknown]
  - Back pain [Unknown]
  - Pruritus [Unknown]
  - Insomnia [Unknown]
  - Aggression [Not Recovered/Not Resolved]
  - Tinnitus [Unknown]
  - Dyspepsia [Unknown]
  - Tooth disorder [Unknown]
  - Weight decreased [Unknown]
  - Erythema [Unknown]
  - Haemorrhage [Unknown]

NARRATIVE: CASE EVENT DATE: 20231201
